FAERS Safety Report 26040720 (Version 2)
Quarter: 2025Q4

REPORT INFORMATION
  Report Type: Spontaneous
  Country: US (occurrence: US)
  Receive Date: 20251113
  Receipt Date: 20251226
  Transmission Date: 20260117
  Serious: No
  Sender: CSL BEHRING
  Company Number: US-BEH-2025225110

PATIENT
  Age: 55 Year

DRUGS (4)
  1. HIZENTRA [Suspect]
     Active Substance: HUMAN IMMUNOGLOBULIN G
     Indication: Myasthenia gravis
     Dosage: 15 G, QOW
     Route: 058
     Dates: start: 20251026
  2. HIZENTRA [Suspect]
     Active Substance: HUMAN IMMUNOGLOBULIN G
     Dosage: 10 G
     Route: 065
  3. HIZENTRA [Suspect]
     Active Substance: HUMAN IMMUNOGLOBULIN G
     Dosage: 4 G
     Route: 065
  4. HIZENTRA [Suspect]
     Active Substance: HUMAN IMMUNOGLOBULIN G
     Dosage: 1 G
     Route: 065

REACTIONS (8)
  - Adverse drug reaction [Recovering/Resolving]
  - Stomatitis [Recovering/Resolving]
  - Throat irritation [Recovering/Resolving]
  - Chapped lips [Recovering/Resolving]
  - Lip erythema [Recovering/Resolving]
  - Malaise [Recovered/Resolved]
  - Cheilitis [Recovering/Resolving]
  - Off label use [Unknown]

NARRATIVE: CASE EVENT DATE: 20251028
